FAERS Safety Report 26014733 (Version 1)
Quarter: 2025Q4

REPORT INFORMATION
  Report Type: Report from Study
  Country: CA (occurrence: CA)
  Receive Date: 20251108
  Receipt Date: 20251108
  Transmission Date: 20260118
  Serious: Yes (Hospitalization, Other)
  Sender: TEVA
  Company Number: CA-TEVA-VS-3389233

PATIENT
  Age: 69 Year
  Sex: Female

DRUGS (6)
  1. CINQAIR [Suspect]
     Active Substance: RESLIZUMAB
     Indication: Asthma
     Route: 042
     Dates: start: 20170726, end: 20240326
  2. VENTOLIN [Concomitant]
     Active Substance: ALBUTEROL SULFATE
     Indication: Product used for unknown indication
     Dosage: 0-4 PUFFS WEEKS
     Route: 065
  3. ALVESCO [Concomitant]
     Active Substance: CICLESONIDE
     Indication: Product used for unknown indication
     Dosage: STRENGTH: 200(UNITS NOT SPECIFIED); FREQUENCY:  2 PUFFS TWICE A DAY
     Route: 065
  4. ZENHALE [Concomitant]
     Active Substance: FORMOTEROL FUMARATE\MOMETASONE FUROATE
     Indication: Product used for unknown indication
     Dosage: STRENGTH: 200/5 (UNITS NOT SPECIFIED); FREQUENCY: 2 PUFFS TWICE A DAY AS NEEDED
  5. XOLAIR [Concomitant]
     Active Substance: OMALIZUMAB
     Indication: Product used for unknown indication
  6. TEZSPIRE [Concomitant]
     Active Substance: TEZEPELUMAB-EKKO
     Indication: Product used for unknown indication
     Route: 065
     Dates: start: 202309

REACTIONS (13)
  - Pneumonia necrotising [Unknown]
  - Intraductal papillary mucinous neoplasm [Unknown]
  - Adrenal insufficiency [Unknown]
  - Peripheral arterial occlusive disease [Unknown]
  - Nephrolithiasis [Unknown]
  - Gastrooesophageal reflux disease [Unknown]
  - Sinusitis [Unknown]
  - Vocal cord paresis [Unknown]
  - Diabetes mellitus [Unknown]
  - Osteoporosis [Unknown]
  - Pickwickian syndrome [Not Recovered/Not Resolved]
  - Anxiety [Unknown]
  - Hypothyroidism [Unknown]

NARRATIVE: CASE EVENT DATE: 20231001
